FAERS Safety Report 6147314-5 (Version None)
Quarter: 2009Q2

REPORT INFORMATION
  Report Type: 
  Country: None (occurrence: None)
  Receive Date: 20090408
  Receipt Date: 20090327
  Transmission Date: 20091009
  Serious: Yes (Other)
  Sender: FDA-Public Use
  Company Number: PHHY2009MX10638

PATIENT
  Age: 62 Year
  Sex: Female

DRUGS (5)
  1. DIOVAN HCT [Suspect]
     Indication: HYPERTENSION
     Dosage: 1 TABLET PER DAY
     Route: 048
     Dates: start: 20060801, end: 20090319
  2. DIOVAN HCT [Suspect]
     Dosage: 2 DF (160/12.5MG)/DAY
     Route: 048
     Dates: start: 20090321
  3. METOPROLOL [Suspect]
     Dosage: UNK
     Dates: start: 20060101
  4. GLIBENCLAMIDE [Concomitant]
     Indication: DIABETES MELLITUS
  5. HYDROCHLOROTHIAZIDE W/TELMISARTAN [Concomitant]

REACTIONS (6)
  - FATIGUE [None]
  - HEADACHE [None]
  - HYPERTENSION [None]
  - TINNITUS [None]
  - VISION BLURRED [None]
  - VOMITING [None]
